FAERS Safety Report 4472546-1 (Version None)
Quarter: 2004Q4

REPORT INFORMATION
  Report Type: 
  Country: None (occurrence: None)
  Receive Date: 20041008
  Receipt Date: 20041001
  Transmission Date: 20050328
  Serious: Yes (Death, Hospitalization)
  Sender: FDA-Public Use
  Company Number: 177434

PATIENT
  Age: 52 Year
  Sex: Female
  Weight: 63.5036 kg

DRUGS (2)
  1. AVONEX [Suspect]
     Indication: MULTIPLE SCLEROSIS
     Dosage: 30 MCG QW IM
     Route: 030
     Dates: start: 20000101, end: 20010101
  2. MEDICATIONS (NOS) [Concomitant]

REACTIONS (6)
  - BLOOD PRESSURE ABNORMAL [None]
  - CENTRAL NERVOUS SYSTEM LESION [None]
  - DISEASE PROGRESSION [None]
  - MULTIPLE SCLEROSIS [None]
  - RESPIRATORY FAILURE [None]
  - TEMPERATURE REGULATION DISORDER [None]
